FAERS Safety Report 22922661 (Version 2)
Quarter: 2024Q3

REPORT INFORMATION
  Report Type: Spontaneous
  Country: US (occurrence: None)
  Receive Date: 20230908
  Receipt Date: 20240906
  Transmission Date: 20241017
  Serious: No
  Sender: DOMPE FARMACEUTICI
  Company Number: US-FARMAPROD-202303-0722

PATIENT
  Sex: Female
  Weight: 43.54 kg

DRUGS (9)
  1. OXERVATE [Suspect]
     Active Substance: CENEGERMIN-BKBJ
     Indication: Neurotrophic keratopathy
     Route: 047
     Dates: start: 20230223, end: 20230420
  2. OXERVATE [Suspect]
     Active Substance: CENEGERMIN-BKBJ
     Route: 047
     Dates: start: 20230810
  3. OXERVATE [Suspect]
     Active Substance: CENEGERMIN-BKBJ
  4. XIIDRA [Suspect]
     Active Substance: LIFITEGRAST
     Dates: end: 202303
  5. PROBIOTICS NOS [Concomitant]
     Active Substance: PROBIOTICS NOS
  6. VITAMINS [Concomitant]
     Active Substance: VITAMINS
  7. GABAPENTIN [Concomitant]
     Active Substance: GABAPENTIN
  8. SYNTHROID [Concomitant]
     Active Substance: LEVOTHYROXINE SODIUM
  9. RESTASIS [Concomitant]
     Active Substance: CYCLOSPORINE

REACTIONS (3)
  - Device use issue [Unknown]
  - Dizziness [Unknown]
  - Migraine [Not Recovered/Not Resolved]
